FAERS Safety Report 12951242 (Version 1)
Quarter: 2016Q4

REPORT INFORMATION
  Report Type: Spontaneous
  Country: NL (occurrence: NL)
  Receive Date: 20161117
  Receipt Date: 20161117
  Transmission Date: 20170207
  Serious: Yes (Hospitalization)
  Sender: FDA-Public Use
  Company Number: NL-TEVA-712639ACC

PATIENT
  Age: 64 Year
  Sex: Male

DRUGS (14)
  1. QUETIAPINE TABLET MGA 300MG [Concomitant]
     Dosage: ONCE DAILY 1 DOSAGE AND ONCE DAILY 2 DOSAGES -} AT HOSPITAL DISCHARGE: TWICE DAILY DOSAGE 150MG
     Route: 048
  2. DEPAKINE ENTERIC TABLET MSR 300MG [Concomitant]
     Route: 048
  3. HALOPERIDOL TABLET 1MG [Suspect]
     Active Substance: HALOPERIDOL
     Indication: BIPOLAR DISORDER
     Dosage: 2 MILLIGRAM DAILY; TWICE DAILY 1 DOSAGE
     Route: 048
     Dates: start: 20161015
  4. OXAZEPAM TABLET 25MG [Concomitant]
     Dosage: IF NEEDED ONCE DAILY 1 DOSAGE
     Route: 048
  5. PROMETHAZINE DRAGEE 25MG [Suspect]
     Active Substance: PROMETHAZINE\PROMETHAZINE HYDROCHLORIDE
     Indication: BIPOLAR DISORDER
     Dosage: IF NEEDED 3 TIMES DAILY 1 DOSAGE
     Route: 048
     Dates: start: 20161015
  6. DAVITAMON COMPLEET [Concomitant]
     Dosage: 1 DOSAGE FORMS DAILY; ONCE DAILY 1 DOSAGE
     Route: 048
  7. VASELINECETOMACROGOLCREME [Concomitant]
     Dosage: IF NEEDED TWICE DAILY DOSAGE
     Route: 003
  8. FENTANYL PLEISTER 25UG/UUR (RESERVOIR) [Concomitant]
     Dosage: .3333 DOSAGE FORMS DAILY; ONCE EVERY 3 DAYS 1
     Route: 062
  9. LEVOMEPROMAZINE TAB 25MG (ALS WATERSTOFMALEAAT) [Suspect]
     Active Substance: LEVOMEPROMAZINE
     Indication: BIPOLAR DISORDER
     Dosage: IF NEEDED 3 TIMES DAILY 1 DOSAGE
     Route: 048
     Dates: start: 20161015
  10. BIPERIDEEN TABLET 2MG [Concomitant]
     Dosage: 4 MILLIGRAM DAILY; TWICE DAILY 1 DOSAGE -} AT HOSPITAL DISCHARGE: TWICE DAILY 1MG
     Route: 048
  11. ZUCLOPENTIXOL INJVLST  50MG/ML [Concomitant]
     Dosage: IF NEEDED ONCE DAILY 50MG
     Route: 051
  12. PERIO-AID MONDSPOELING [Concomitant]
     Dosage: IF NEEDED
     Route: 048
  13. OMEPRAZOL TABLET MGA 20MG [Concomitant]
     Dosage: 20 MILLIGRAM DAILY; ONCE DAILY 1 DOSAGE
     Route: 048
  14. MOVICOLON POEDER VOOR DRANK IN SACHET [Concomitant]
     Dosage: 1 DOSAGE FORMS DAILY; ONCE DAILY 1 DOSAGE
     Route: 048

REACTIONS (5)
  - Muscle rigidity [Recovered/Resolved]
  - Salivary hypersecretion [Recovered/Resolved]
  - Hypothermia [Recovered/Resolved]
  - Depressed level of consciousness [Recovered/Resolved]
  - Dry mouth [Recovered/Resolved]

NARRATIVE: CASE EVENT DATE: 20161016
